FAERS Safety Report 9233507 (Version 1)
Quarter: 2013Q2

REPORT INFORMATION
  Report Type: Spontaneous
  Country: US (occurrence: US)
  Receive Date: 20130416
  Receipt Date: 20130416
  Transmission Date: 20140414
  Serious: Yes (Other)
  Sender: FDA-Public Use
  Company Number: US-BRISTOL-MYERS SQUIBB COMPANY-18754572

PATIENT
  Age: 36 Year
  Sex: Female

DRUGS (2)
  1. ONGLYZA TABS [Suspect]
  2. METFORMIN HCL [Suspect]

REACTIONS (2)
  - Pancreatitis [Unknown]
  - Liver function test abnormal [Unknown]
